FAERS Safety Report 12168689 (Version 1)
Quarter: 2016Q1

REPORT INFORMATION
  Report Type: Spontaneous
  Country: US (occurrence: US)
  Receive Date: 20160310
  Receipt Date: 20160310
  Transmission Date: 20160526
  Serious: Yes (Other)
  Sender: FDA-Public Use
  Company Number: US-TEVA-641092USA

PATIENT
  Sex: Female
  Weight: 39.95 kg

DRUGS (1)
  1. COPAXONE [Suspect]
     Active Substance: GLATIRAMER ACETATE
     Dosage: UNKNOWN FORM STRENGTH
     Route: 065

REACTIONS (4)
  - Salpingo-oophorectomy [Unknown]
  - Injection site pain [Unknown]
  - Myotonic dystrophy [Unknown]
  - Chest discomfort [Unknown]
